FAERS Safety Report 9376499 (Version 1)
Quarter: 2013Q2

REPORT INFORMATION
  Report Type: Spontaneous
  Country: US (occurrence: None)
  Receive Date: 20130628
  Receipt Date: 20130628
  Transmission Date: 20140414
  Serious: Yes (Other)
  Sender: FDA-Public Use
  Company Number: None

PATIENT
  Sex: 0

DRUGS (3)
  1. LIDOCAINE [Suspect]
  2. EPINEPHRINE [Suspect]
  3. BUPIVACAINE [Suspect]

REACTIONS (1)
  - Injection site necrosis [None]
